FAERS Safety Report 10732539 (Version 2)
Quarter: 2015Q2

REPORT INFORMATION
  Report Type: Spontaneous
  Country: IT (occurrence: IT)
  Receive Date: 20150123
  Receipt Date: 20150416
  Transmission Date: 20150821
  Serious: Yes (Hospitalization)
  Sender: FDA-Public Use
  Company Number: IT-SA-2015SA006970

PATIENT
  Age: 92 Year
  Sex: Female

DRUGS (8)
  1. LASIX [Suspect]
     Active Substance: FUROSEMIDE
     Route: 048
     Dates: start: 20140101, end: 20141226
  2. COUMADIN [Concomitant]
     Active Substance: WARFARIN SODIUM
     Dosage: STRENGTH: 5 MG?FORM: DIVISIBLE TABLETS
  3. FLURAZEPAM [Concomitant]
     Active Substance: FLURAZEPAM\FLURAZEPAM HYDROCHLORIDE
     Dosage: STRENGTH: 15 MG?FORM: HARD CAPSULE
  4. NITRO-DUR [Concomitant]
     Active Substance: NITROGLYCERIN
  5. SOTALOL. [Concomitant]
     Active Substance: SOTALOL
  6. EUTIROX [Concomitant]
     Active Substance: LEVOTHYROXINE SODIUM
     Dosage: STRENGTH: 75MG?DOSE: 1 DOSAGE UNIT DOSE:1 UNIT(S)
     Route: 048
  7. PANTORC [Concomitant]
     Active Substance: PANTOPRAZOLE SODIUM
     Dosage: STRENGTH: 20 MG?DOSAGE: 2 DOSAGE UNITS DOSE:2 UNIT(S)
     Route: 048
  8. OLPREZIDE [Suspect]
     Active Substance: HYDROCHLOROTHIAZIDE\OLMESARTAN MEDOXOMIL
     Dosage: DOSE:1 UNIT(S)
     Route: 048
     Dates: start: 20140101, end: 20141226

REACTIONS (6)
  - Decreased appetite [Unknown]
  - Asthenia [Unknown]
  - Sopor [Unknown]
  - Electrolyte imbalance [Unknown]
  - Hyponatraemia [Unknown]
  - Hypokalaemia [Unknown]

NARRATIVE: CASE EVENT DATE: 20141221
